FAERS Safety Report 23957448 (Version 1)
Quarter: 2024Q2

REPORT INFORMATION
  Report Type: Spontaneous
  Country: FR (occurrence: FR)
  Receive Date: 20240610
  Receipt Date: 20240610
  Transmission Date: 20240716
  Serious: Yes (Other)
  Sender: FDA-Public Use
  Company Number: None

PATIENT

DRUGS (3)
  1. XCOPRI [Suspect]
     Active Substance: CENOBAMATE
     Indication: Epilepsy
     Dosage: 200 MG (200 MG,1 D)
     Route: 048
     Dates: start: 20240207, end: 20240408
  2. FYCOMPA [Concomitant]
     Active Substance: PERAMPANEL
     Indication: Product used for unknown indication
     Dosage: 6 MG (6 MG,1 IN 1 D)
     Route: 065
  3. VIMPAT [Concomitant]
     Active Substance: LACOSAMIDE
     Indication: Product used for unknown indication
     Dosage: 400 MG (400 MG,1 D)
     Route: 065

REACTIONS (1)
  - Transient acantholytic dermatosis [Recovering/Resolving]

NARRATIVE: CASE EVENT DATE: 20240201
